FAERS Safety Report 21655820 (Version 2)
Quarter: 2023Q2

REPORT INFORMATION
  Report Type: Report from Study
  Country: US (occurrence: US)
  Receive Date: 20221129
  Receipt Date: 20230516
  Transmission Date: 20230722
  Serious: No
  Sender: FDA-Public Use
  Company Number: US-ABBVIE-4165170

PATIENT
  Age: 75 Year
  Sex: Female

DRUGS (2)
  1. HUMIRA [Suspect]
     Active Substance: ADALIMUMAB
     Indication: Rheumatoid arthritis
     Route: 058
  2. Moderna [Concomitant]
     Indication: COVID-19 immunisation
     Dosage: ONE IN ONCE (BOOSTER VACCINE)
     Route: 030

REACTIONS (6)
  - SARS-CoV-2 test positive [Recovering/Resolving]
  - Pyrexia [Unknown]
  - Lip exfoliation [Unknown]
  - Somnolence [Unknown]
  - Taste disorder [Unknown]
  - Brain fog [Unknown]

NARRATIVE: CASE EVENT DATE: 20221004
